FAERS Safety Report 21780204 (Version 1)
Quarter: 2022Q4

REPORT INFORMATION
  Report Type: Report from Study
  Country: IL (occurrence: IL)
  Receive Date: 20221226
  Receipt Date: 20221226
  Transmission Date: 20230113
  Serious: Yes (Other)
  Sender: FDA-Public Use
  Company Number: IL-SUN PHARMACEUTICAL INDUSTRIES LTD-2020R1-248127

PATIENT
  Age: 41 Year
  Sex: Male

DRUGS (5)
  1. METHOTREXATE [Suspect]
     Active Substance: METHOTREXATE
     Indication: Polyarteritis nodosa
     Dosage: UNK
     Route: 065
  2. PREDNISONE [Suspect]
     Active Substance: PREDNISONE
     Indication: Polyarteritis nodosa
     Dosage: UNK
     Route: 065
  3. CYCLOPHOSPHAMIDE [Concomitant]
     Active Substance: CYCLOPHOSPHAMIDE
     Indication: Polyarteritis nodosa
     Dosage: UNK
     Route: 065
  4. ILOPROST [Concomitant]
     Active Substance: ILOPROST
     Indication: Polyarteritis nodosa
     Dosage: UNK
     Route: 065
  5. POTASSIUM IODIDE [Concomitant]
     Active Substance: POTASSIUM IODIDE
     Indication: Polyarteritis nodosa
     Dosage: UNK
     Route: 065

REACTIONS (1)
  - Treatment failure [Unknown]
